FAERS Safety Report 8858681 (Version 1)
Quarter: 2012Q4

REPORT INFORMATION
  Report Type: 
  Country: SE (occurrence: SE)
  Receive Date: 20121024
  Receipt Date: 20121024
  Transmission Date: 20130627
  Serious: Yes (Disabling)
  Sender: FDA-Public Use
  Company Number: SE-PFIZER INC-2012263193

PATIENT
  Age: 62 Year
  Sex: Female

DRUGS (6)
  1. LYRICA [Suspect]
     Dosage: 50 mg, 4x/day
     Dates: start: 20091209
  2. ENALAPRIL [Concomitant]
     Dosage: UNK
  3. TOVIAZ [Concomitant]
     Dosage: 4 mg, unknown frequency
  4. CITODON [Concomitant]
     Dosage: 500 mg/30 mg, unknown frequency
  5. MAGNESIUM [Concomitant]
     Dosage: UNK
  6. LEVAXIN [Concomitant]
     Dosage: 25 ug, unknown frequency

REACTIONS (5)
  - Dyspnoea [Not Recovered/Not Resolved]
  - Hunger [Not Recovered/Not Resolved]
  - Overweight [Not Recovered/Not Resolved]
  - Fatigue [Not Recovered/Not Resolved]
  - Balance disorder [Not Recovered/Not Resolved]
